FAERS Safety Report 14012418 (Version 1)
Quarter: 2017Q3

REPORT INFORMATION
  Report Type: Report from Study
  Country: None (occurrence: BR)
  Receive Date: 20170926
  Receipt Date: 20170926
  Transmission Date: 20171128
  Serious: Yes (Other)
  Sender: FDA-Public Use
  Company Number: BR-ABBVIE-17K-020-2109805-00

PATIENT
  Sex: Male
  Weight: 78 kg

DRUGS (5)
  1. MESALAZINE [Concomitant]
     Active Substance: MESALAMINE
  2. HUMIRA [Suspect]
     Active Substance: ADALIMUMAB
     Route: 058
     Dates: start: 2017, end: 20170915
  3. HUMIRA [Suspect]
     Active Substance: ADALIMUMAB
     Indication: COLITIS ULCERATIVE
     Dosage: WEEK 0
     Route: 058
     Dates: start: 20170301, end: 20170301
  4. MESALAZINE [Concomitant]
     Active Substance: MESALAMINE
     Indication: PRODUCT USED FOR UNKNOWN INDICATION
  5. HUMIRA [Suspect]
     Active Substance: ADALIMUMAB
     Dosage: WEEK 2
     Route: 058
     Dates: start: 2017, end: 2017

REACTIONS (9)
  - Stoma site inflammation [Not Recovered/Not Resolved]
  - Weight increased [Recovering/Resolving]
  - Gastrointestinal infection [Unknown]
  - Irritable bowel syndrome [Not Recovered/Not Resolved]
  - Stoma site irritation [Recovering/Resolving]
  - Stoma site discharge [Not Recovered/Not Resolved]
  - Medical device site vesicles [Not Recovered/Not Resolved]
  - Gastrointestinal inflammation [Not Recovered/Not Resolved]
  - Medical device site dermatitis [Not Recovered/Not Resolved]

NARRATIVE: CASE EVENT DATE: 2017
